FAERS Safety Report 6756560-9 (Version None)
Quarter: 2010Q2

REPORT INFORMATION
  Report Type: 
  Country: None (occurrence: None)
  Receive Date: 20100604
  Receipt Date: 20100215
  Transmission Date: 20101027
  Serious: Yes (Other)
  Sender: FDA-Public Use
  Company Number: A0843880A

PATIENT
  Age: 22 Year
  Sex: Male

DRUGS (2)
  1. LAMOTRIGINE [Suspect]
     Route: 065
  2. TRILEPTAL [Concomitant]

REACTIONS (2)
  - CONVULSION [None]
  - DRUG INEFFECTIVE [None]
